FAERS Safety Report 14327519 (Version 1)
Quarter: 2017Q4

REPORT INFORMATION
  Report Type: Spontaneous
  Country: US (occurrence: US)
  Receive Date: 20171226
  Receipt Date: 20171226
  Transmission Date: 20180321
  Serious: No
  Sender: FDA-Public Use
  Company Number: None

PATIENT
  Age: 72 Year
  Sex: Male

DRUGS (1)
  1. RITUXIMAB. [Suspect]
     Active Substance: RITUXIMAB
     Indication: MARGINAL ZONE LYMPHOMA
     Route: 042
     Dates: start: 20170814

REACTIONS (4)
  - Chills [None]
  - Thrombocytopenia [None]
  - Hypertension [None]
  - Dyspnoea [None]

NARRATIVE: CASE EVENT DATE: 20170814
